FAERS Safety Report 10796257 (Version 1)
Quarter: 2015Q1

REPORT INFORMATION
  Report Type: Spontaneous
  Country: IT (occurrence: IT)
  Receive Date: 20150216
  Receipt Date: 20150216
  Transmission Date: 20150721
  Serious: Yes (Death, Other)
  Sender: FDA-Public Use
  Company Number: IT-RANBAXY-2015R1-92923

PATIENT
  Age: 63 Year
  Sex: Male

DRUGS (1)
  1. METFORMIN [Suspect]
     Active Substance: METFORMIN HYDROCHLORIDE
     Indication: TYPE 2 DIABETES MELLITUS
     Dosage: UNK
     Route: 065

REACTIONS (8)
  - Diarrhoea [Unknown]
  - Toxicity to various agents [Unknown]
  - Death [Fatal]
  - Hypotension [Unknown]
  - Dyspnoea [Unknown]
  - Hyperlactacidaemia [Unknown]
  - Hypoglycaemia [Unknown]
  - Metabolic acidosis [Unknown]
